APPROVED DRUG PRODUCT: BAXDELA
Active Ingredient: DELAFLOXACIN MEGLUMINE
Strength: EQ 300MG BASE/VIAL
Dosage Form/Route: POWDER;INTRAVENOUS
Application: N208611 | Product #001
Applicant: MELINTA SUBSIDIARY CORP
Approved: Jun 19, 2017 | RLD: Yes | RS: Yes | Type: RX

PATENTS:
Patent 8252813 | Expires: Oct 2, 2026
Patent 12036219 | Expires: Jun 2, 2034
Patent 7728143 | Expires: Jun 19, 2031
Patent 9200088 | Expires: Mar 13, 2029
Patent 9750822 | Expires: Mar 13, 2029
Patent 7635773 | Expires: Mar 13, 2029
Patent 8410077 | Expires: Mar 13, 2029
Patent 9493582 | Expires: Feb 27, 2033
Patent 8871938 | Expires: Sep 23, 2029
Patent 12138257 | Expires: May 1, 2032
Patent RE46617 | Expires: Dec 28, 2029
Patent 8273892 | Expires: Aug 6, 2026

EXCLUSIVITY:
Code: NCE | Date: Jun 19, 2022
Code: GAIN | Date: Jun 19, 2027